FAERS Safety Report 5636632-2 (Version None)
Quarter: 2008Q1

REPORT INFORMATION
  Report Type: 
  Country: None (occurrence: None)
  Receive Date: 20080225
  Receipt Date: 20080214
  Transmission Date: 20080703
  Serious: Yes (Disabling)
  Sender: FDA-Public Use
  Company Number: DK-ASTRAZENECA-2008SE00607

PATIENT
  Age: 630 Month
  Sex: Female
  Weight: 67 kg

DRUGS (4)
  1. NEXIUM [Suspect]
     Route: 048
     Dates: start: 20071115, end: 20071210
  2. NEXIUM [Suspect]
     Route: 048
     Dates: start: 20071101, end: 20080127
  3. SPIROCORT [Concomitant]
     Indication: ASTHMA
     Dates: start: 20060101
  4. OXIS TURBOHALER [Concomitant]
     Indication: ASTHMA
     Dates: start: 20060101

REACTIONS (4)
  - COUGH [None]
  - DYSPHONIA [None]
  - INCREASED UPPER AIRWAY SECRETION [None]
  - TONGUE DISORDER [None]
